FAERS Safety Report 16843726 (Version 1)
Quarter: 2019Q4

REPORT INFORMATION
  Report Type: Spontaneous
  Country: US (occurrence: US)
  Receive Date: 20190923
  Receipt Date: 20190923
  Transmission Date: 20200122
  Serious: Yes (Hospitalization)
  Sender: FDA-Public Use
  Company Number: None

PATIENT
  Age: 10 Year
  Sex: Female
  Weight: 33.7 kg

DRUGS (1)
  1. LUPRON DEPOT-PED [Suspect]
     Active Substance: LEUPROLIDE ACETATE
     Indication: PRECOCIOUS PUBERTY
     Dosage: ?          OTHER FREQUENCY:Q 3 MO;?
     Route: 030
     Dates: start: 20180801, end: 20190710

REACTIONS (1)
  - Abscess drainage [None]

NARRATIVE: CASE EVENT DATE: 20190717
